FAERS Safety Report 22270409 (Version 1)
Quarter: 2023Q2

REPORT INFORMATION
  Report Type: Spontaneous
  Country: US (occurrence: None)
  Receive Date: 20230429
  Receipt Date: 20230429
  Transmission Date: 20230722
  Serious: No
  Sender: FDA-Public Use
  Company Number: None

PATIENT
  Age: 40 Year
  Sex: Female

DRUGS (1)
  1. DEXTROAMPHET SACCHARAT, AMPHET ASPARTATE, DEXTROAMPHET SULFATE AND AMP [Suspect]
     Active Substance: AMPHETAMINE ASPARTATE\AMPHETAMINE ASPARTATE MONOHYDRATE\AMPHETAMINE SULFATE\DEXTROAMPHETAMINE SACCHA
     Indication: Attention deficit hyperactivity disorder
     Route: 048
     Dates: start: 20230427, end: 20230429

REACTIONS (8)
  - Product substitution issue [None]
  - Mental disorder [None]
  - Headache [None]
  - Vitreous floaters [None]
  - Vision blurred [None]
  - Disturbance in attention [None]
  - Irritability [None]
  - Impaired driving ability [None]

NARRATIVE: CASE EVENT DATE: 20230428
